FAERS Safety Report 7377338-1 (Version None)
Quarter: 2011Q1

REPORT INFORMATION
  Report Type: 
  Country: None (occurrence: None)
  Receive Date: 20110328
  Receipt Date: 20110316
  Transmission Date: 20110831
  Serious: Yes (Hospitalization)
  Sender: FDA-Public Use
  Company Number: FR-JNJFOC-20110305865

PATIENT
  Sex: Male

DRUGS (10)
  1. HALDOL [Suspect]
     Route: 048
  2. HALDOL [Suspect]
     Indication: INSOMNIA
     Route: 048
  3. KARDEGIC [Concomitant]
     Route: 048
  4. LOVENOX [Concomitant]
  5. SPECIAFOLDINE [Concomitant]
  6. IKOREL [Concomitant]
     Route: 048
  7. FORLAX [Concomitant]
  8. SERTRALINE HYDROCHLORIDE [Concomitant]
  9. IMOVANE [Suspect]
     Indication: INSOMNIA
     Route: 048
  10. IMOVANE [Suspect]
     Route: 048

REACTIONS (7)
  - DYSKINESIA [None]
  - OFF LABEL USE [None]
  - TRAUMATIC BRAIN INJURY [None]
  - MUSCLE RIGIDITY [None]
  - COGWHEEL RIGIDITY [None]
  - DIZZINESS [None]
  - FALL [None]
